FAERS Safety Report 16883281 (Version 1)
Quarter: 2019Q4

REPORT INFORMATION
  Report Type: Spontaneous
  Country: US (occurrence: US)
  Receive Date: 20191004
  Receipt Date: 20191004
  Transmission Date: 20200122
  Serious: Yes (Other)
  Sender: FDA-Public Use
  Company Number: US-PRINSTON PHARMACEUTICAL INC.-2019PRN00839

PATIENT
  Sex: Male

DRUGS (1)
  1. FOSINOPRIL [Suspect]
     Active Substance: FOSINOPRIL
     Indication: HYPERTENSION
     Dosage: 20 MG

REACTIONS (3)
  - Neuropathy peripheral [Unknown]
  - Product substitution issue [Recovered/Resolved]
  - Product dose omission [Recovered/Resolved]
